FAERS Safety Report 5275812-5 (Version None)
Quarter: 2007Q2

REPORT INFORMATION
  Report Type: 
  Country: None (occurrence: None)
  Receive Date: 20070326
  Receipt Date: 20070316
  Transmission Date: 20071010
  Serious: Yes (Other)
  Sender: FDA-Public Use
  Company Number: GB-GLAXOSMITHKLINE-B0463354A

PATIENT
  Age: 40 Year
  Sex: Male
  Weight: 92.3 kg

DRUGS (11)
  1. AMOXICILLIN + CLAVULANATE POTASSIUM [Suspect]
     Indication: SURGERY
     Route: 042
     Dates: start: 20060519, end: 20060519
  2. ACETAMINOPHEN [Suspect]
     Route: 042
     Dates: start: 20060519, end: 20060519
  3. ATENOLOL [Concomitant]
     Indication: HYPERTENSION
     Route: 048
  4. CO-CODAMOL [Concomitant]
     Route: 048
  5. CYCLIZINE [Concomitant]
     Route: 042
  6. FENTANYL [Concomitant]
     Route: 042
  7. LANSOPRAZOLE [Concomitant]
     Route: 048
  8. ONDANSETRON [Concomitant]
     Route: 042
  9. PROPOFOL [Concomitant]
     Route: 042
  10. SIMVASTATIN [Concomitant]
     Route: 048
  11. SODIUM CHLORIDE 0.9% [Concomitant]
     Route: 042

REACTIONS (3)
  - BLOOD PRESSURE DECREASED [None]
  - HYPERSENSITIVITY [None]
  - OXYGEN SATURATION DECREASED [None]
